FAERS Safety Report 11469400 (Version 1)
Quarter: 2015Q3

REPORT INFORMATION
  Report Type: Spontaneous
  Country: DE (occurrence: DE)
  Receive Date: 20150908
  Receipt Date: 20150908
  Transmission Date: 20151125
  Serious: Yes (Hospitalization)
  Sender: FDA-Public Use
  Company Number: DE-ASTRAZENECA-2015SE85446

PATIENT
  Age: 61 Year
  Sex: Male

DRUGS (3)
  1. FORXIGA [Suspect]
     Active Substance: DAPAGLIFLOZIN
     Route: 048
  2. TORASEMID [Concomitant]
     Active Substance: TORSEMIDE
  3. OTHER DRUGS [Concomitant]
     Active Substance: UNSPECIFIED INGREDIENT

REACTIONS (5)
  - Weight decreased [Unknown]
  - Renal colic [Unknown]
  - Defaecation urgency [Unknown]
  - Dehydration [Unknown]
  - Micturition urgency [Unknown]
